FAERS Safety Report 14467262 (Version 1)
Quarter: 2018Q1

REPORT INFORMATION
  Report Type: Report from Study
  Country: PH (occurrence: PH)
  Receive Date: 20180131
  Receipt Date: 20180131
  Transmission Date: 20180509
  Serious: Yes (Death)
  Sender: FDA-Public Use
  Company Number: PHHY2018PH015369

PATIENT
  Age: 56 Year
  Sex: Male

DRUGS (1)
  1. AFINITOR [Suspect]
     Active Substance: EVEROLIMUS
     Indication: RENAL CELL CARCINOMA
     Dosage: UNK UNK, QD
     Route: 048
     Dates: start: 20171122

REACTIONS (1)
  - Death [Fatal]

NARRATIVE: CASE EVENT DATE: 20171215
